FAERS Safety Report 24428620 (Version 1)
Quarter: 2024Q4

REPORT INFORMATION
  Report Type: Spontaneous
  Country: US (occurrence: US)
  Receive Date: 20241011
  Receipt Date: 20241011
  Transmission Date: 20250115
  Serious: Yes (Other)
  Sender: BAXTER
  Company Number: US-BAXTER-2024BAX025615

PATIENT
  Sex: Female
  Weight: 63.4 kg

DRUGS (5)
  1. CYCLOPHOSPHAMIDE [Suspect]
     Active Substance: CYCLOPHOSPHAMIDE
     Indication: Acute lymphocytic leukaemia
     Dosage: UNK, WITH TOTAL DOSE  ADMINISTERED THIS COURSE (DOSE) WAS 3060 MG, ONGOING, FIRST CYCLE
     Route: 065
     Dates: start: 20240418
  2. CYCLOPHOSPHAMIDE [Suspect]
     Active Substance: CYCLOPHOSPHAMIDE
     Dosage: LAST ADMINISTERED
     Route: 065
     Dates: start: 20240421, end: 20240421
  3. DOXORUBICIN [Suspect]
     Active Substance: DOXORUBICIN
     Indication: Acute lymphocytic leukaemia
     Dosage: UNK, WITH TOTAL DOSE  ADMINISTERED THIS COURSE (DOSE): 85 MG, FIRST CYCLE
     Route: 065
     Dates: start: 20240418, end: 20240421
  4. DEXAMETHASONE [Suspect]
     Active Substance: DEXAMETHASONE
     Indication: Acute lymphocytic leukaemia
     Dosage: UNK, WITH TOTAL DOSE  ADMINISTERED THIS COURSE (DOSE): 320 MG, ONGOING, FIRST CYCLE
     Route: 065
     Dates: start: 20240418
  5. DEXAMETHASONE [Suspect]
     Active Substance: DEXAMETHASONE
     Dosage: LAST ADMINISTERED
     Route: 065
     Dates: start: 20240501, end: 20240501

REACTIONS (2)
  - Alanine aminotransferase increased [Recovered/Resolved]
  - Aspartate aminotransferase increased [Recovered/Resolved]

NARRATIVE: CASE EVENT DATE: 20240508
